FAERS Safety Report 4379648-9 (Version None)
Quarter: 2004Q2

REPORT INFORMATION
  Report Type: 
  Country: None (occurrence: None)
  Receive Date: 20040617
  Receipt Date: 20040614
  Transmission Date: 20050107
  Serious: Yes (Hospitalization)
  Sender: FDA-Public Use
  Company Number: FR-MERCK-0406FRA00058

PATIENT
  Age: 75 Year
  Sex: Male

DRUGS (6)
  1. CLOPIDOGREL BISULFATE [Suspect]
     Indication: CORONARY ARTERY INSUFFICIENCY
     Route: 048
  2. GINKGO BILOBA EXTRACT [Suspect]
     Indication: VASCULAR INSUFFICIENCY
     Route: 048
  3. PRAVASTATIN SODIUM [Suspect]
     Indication: HYPERCHOLESTEROLAEMIA
     Route: 048
  4. VIOXX [Suspect]
     Route: 048
     Dates: start: 20040212, end: 20040226
  5. SOTALOL HYDROCHLORIDE [Suspect]
     Indication: CORONARY ARTERY INSUFFICIENCY
     Route: 048
     Dates: end: 20040226
  6. TRIMETAZIDINE HYDROCHLORIDE [Suspect]
     Route: 048

REACTIONS (3)
  - BLOOD CREATININE INCREASED [None]
  - BODY TEMPERATURE INCREASED [None]
  - DIARRHOEA [None]
